FAERS Safety Report 7414514-3 (Version None)
Quarter: 2011Q2

REPORT INFORMATION
  Report Type: 
  Country: None (occurrence: None)
  Receive Date: 20110406
  Receipt Date: 20110318
  Transmission Date: 20111010
  Serious: Yes (Hospitalization, Disabling)
  Sender: FDA-Public Use
  Company Number: D1101570

PATIENT
  Age: 39 Year
  Sex: Male
  Weight: 47.6277 kg

DRUGS (4)
  1. JANTOVEN [Suspect]
     Indication: DEEP VEIN THROMBOSIS
     Dosage: ORAL
     Route: 047
  2. JANTOVEN [Suspect]
     Indication: PULMONARY EMBOLISM
     Dosage: ORAL
     Route: 047
  3. MERCAPTOPURINE [Concomitant]
  4. HUMIRA [Concomitant]

REACTIONS (12)
  - ARTERIOSCLEROSIS OBLITERANS [None]
  - HYPERCOAGULATION [None]
  - LEG AMPUTATION [None]
  - INTERNATIONAL NORMALISED RATIO INCREASED [None]
  - PERIPHERAL ARTERIAL OCCLUSIVE DISEASE [None]
  - INTERNATIONAL NORMALISED RATIO DECREASED [None]
  - GANGRENE [None]
  - EXTREMITY NECROSIS [None]
  - PROTHROMBIN TIME PROLONGED [None]
  - POST PROCEDURAL OEDEMA [None]
  - AORTIC EMBOLUS [None]
  - ANTIPHOSPHOLIPID ANTIBODIES POSITIVE [None]
